FAERS Safety Report 6251933-5 (Version None)
Quarter: 2009Q2

REPORT INFORMATION
  Report Type: 
  Country: None (occurrence: None)
  Receive Date: 20090629
  Receipt Date: 20090625
  Transmission Date: 20091009
  Serious: Yes (Hospitalization, Other)
  Sender: FDA-Public Use
  Company Number: 2009SP013547

PATIENT
  Age: 6 Month
  Sex: Female

DRUGS (2)
  1. ELOCON [Suspect]
     Indication: DERMATITIS ATOPIC
     Dosage: ; TOP
     Route: 061
  2. FUCICORT (FUCIDIC ACID AND BETAMETHASONE VALERATE) (FUCICORT /01131501 [Suspect]
     Indication: DERMATITIS ATOPIC
     Dosage: ; TOP
     Route: 061

REACTIONS (7)
  - CELLULITIS [None]
  - FURUNCLE [None]
  - INAPPROPRIATE SCHEDULE OF DRUG ADMINISTRATION [None]
  - INTENTIONAL OVERDOSE [None]
  - METABOLIC DISORDER [None]
  - SKIN ATROPHY [None]
  - SKIN DISORDER [None]
